FAERS Safety Report 7782273-0 (Version None)
Quarter: 2011Q3

REPORT INFORMATION
  Report Type: 
  Country: None (occurrence: None)
  Receive Date: 20110927
  Receipt Date: 20110921
  Transmission Date: 20111222
  Serious: Yes (Hospitalization)
  Sender: FDA-Public Use
  Company Number: JP-MERCK-0812USA03396

PATIENT
  Age: 76 Year
  Sex: Female

DRUGS (13)
  1. METALCAPTASE [Concomitant]
     Indication: RHEUMATOID ARTHRITIS
     Route: 048
  2. MECOBALAMIN [Concomitant]
     Indication: NEUROPATHY PERIPHERAL
     Route: 048
  3. DORNER [Concomitant]
     Route: 048
  4. AMLODIPINE [Concomitant]
     Indication: HYPERTENSION
     Route: 048
  5. ALFAROL [Concomitant]
     Indication: OSTEOPOROSIS
     Route: 048
  6. OMEPRAZOLE [Concomitant]
     Indication: GASTROOESOPHAGEAL REFLUX DISEASE
     Route: 048
  7. FOSAMAX [Suspect]
     Route: 048
     Dates: start: 20040601, end: 20060101
  8. FOSAMAX [Suspect]
     Indication: OSTEOPOROSIS
     Route: 048
     Dates: start: 20060101, end: 20081101
  9. PREDNISOLONE [Concomitant]
     Indication: RHEUMATOID ARTHRITIS
     Route: 048
     Dates: start: 19980101
  10. LIPITOR [Concomitant]
     Route: 048
  11. PYRIDOXAL PHOSPHATE [Concomitant]
     Route: 048
  12. KENTON (VITAMIN E NICOTINATE) [Concomitant]
     Route: 048
  13. RUEFRIEN [Concomitant]
     Route: 048

REACTIONS (1)
  - FEMUR FRACTURE [None]
